FAERS Safety Report 4776265-3 (Version None)
Quarter: 2005Q3

REPORT INFORMATION
  Report Type: 
  Country: None (occurrence: None)
  Receive Date: 20050922
  Receipt Date: 20050912
  Transmission Date: 20060218
  Serious: Yes (Hospitalization)
  Sender: FDA-Public Use
  Company Number: FR-JNJFOC-20050902991

PATIENT
  Age: 46 Year
  Sex: Male
  Weight: 46 kg

DRUGS (15)
  1. DURAGESIC-100 [Suspect]
     Indication: METASTASES TO BONE MARROW
     Route: 062
  2. DURAGESIC-100 [Suspect]
     Route: 062
  3. SERESTA [Suspect]
     Indication: DRUG USE FOR UNKNOWN INDICATION
     Route: 048
  4. BI-PROFENID [Suspect]
     Indication: METASTASES TO BONE MARROW
     Route: 048
  5. BI-PROFENID [Suspect]
     Route: 048
  6. HYCAMTIN [Suspect]
     Indication: LUNG NEOPLASM
     Route: 042
  7. HYCAMTIN [Suspect]
     Indication: BRONCHIAL NEOPLASM
     Route: 042
  8. HYCAMTIN [Suspect]
     Indication: TRACHEAL NEOPLASM
     Route: 042
  9. ZOMETA [Suspect]
     Indication: METASTASES TO BONE MARROW
     Route: 042
  10. ZOMETA [Suspect]
     Route: 042
  11. NEORECORMON [Suspect]
     Indication: DRUG USE FOR UNKNOWN INDICATION
     Route: 058
  12. ETOPOSIDE [Concomitant]
     Route: 065
  13. CISPLATIN [Concomitant]
     Route: 065
  14. SKENAN [Concomitant]
     Route: 065
  15. OXYNORM [Concomitant]
     Route: 065

REACTIONS (2)
  - ASEPTIC NECROSIS BONE [None]
  - JAW DISORDER [None]
